FAERS Safety Report 25263825 (Version 1)
Quarter: 2025Q2

REPORT INFORMATION
  Report Type: Spontaneous
  Country: CN (occurrence: CN)
  Receive Date: 20250502
  Receipt Date: 20250502
  Transmission Date: 20250716
  Serious: Yes (Life-Threatening, Other)
  Sender: BAYER HEALTHCARE PHARMACEUTICALS INC.
  Company Number: CN-BAYER-2025A059897

PATIENT
  Age: 32 Year
  Sex: Male

DRUGS (2)
  1. ULTRAVIST [Suspect]
     Active Substance: IOPROMIDE
     Indication: Computerised tomogram heart
     Route: 042
     Dates: start: 20250412, end: 20250412
  2. ULTRAVIST [Suspect]
     Active Substance: IOPROMIDE
     Indication: Chest pain

REACTIONS (7)
  - Anaphylactic shock [Recovering/Resolving]
  - Urticaria [Recovering/Resolving]
  - Dizziness [Recovering/Resolving]
  - Vision blurred [Recovering/Resolving]
  - Seizure [Recovering/Resolving]
  - Pallor [Recovering/Resolving]
  - Blood pressure decreased [None]

NARRATIVE: CASE EVENT DATE: 20250412
